FAERS Safety Report 4541904-9 (Version None)
Quarter: 2004Q4

REPORT INFORMATION
  Report Type: 
  Country: None (occurrence: None)
  Receive Date: 20041230
  Receipt Date: 20030704
  Transmission Date: 20050328
  Serious: Yes (Other)
  Sender: FDA-Public Use
  Company Number: PHFR2003GB02689

PATIENT
  Age: 22 Year
  Sex: Female

DRUGS (1)
  1. CLOZARIL [Suspect]
     Indication: SCHIZOPHRENIA
     Route: 048
     Dates: start: 20010703, end: 20030617

REACTIONS (5)
  - DYSPHEMIA [None]
  - HAEMORRHAGE [None]
  - MENORRHAGIA [None]
  - SALIVARY HYPERSECRETION [None]
  - WEIGHT INCREASED [None]
